FAERS Safety Report 8978278 (Version 1)
Quarter: 2012Q4

REPORT INFORMATION
  Report Type: 
  Country: FR (occurrence: FR)
  Receive Date: 20121220
  Receipt Date: 20121220
  Transmission Date: 20130627
  Serious: Yes (Other)
  Sender: FDA-Public Use
  Company Number: FR-009507513-1212FRA004511

PATIENT
  Sex: Female
  Weight: 73 kg

DRUGS (1)
  1. VIRAFERONPEG [Suspect]
     Indication: EOSINOPHILIA
     Dosage: 50 Microgram, qw
     Route: 058
     Dates: start: 20110822

REACTIONS (1)
  - Basedow^s disease [Not Recovered/Not Resolved]
